FAERS Safety Report 5414016-X (Version None)
Quarter: 2007Q3

REPORT INFORMATION
  Report Type: 
  Country: None (occurrence: None)
  Receive Date: 20070713
  Receipt Date: 20061023
  Transmission Date: 20080115
  Serious: No
  Sender: FDA-Public Use
  Company Number: US-JNJFOC-20061005368

PATIENT
  Age: 17 Year
  Sex: Female

DRUGS (1)
  1. ORTHO EVRA [Suspect]
     Indication: CONTRACEPTION
     Dosage: 1 DOSE(S), 3 IN 4 WEEK

REACTIONS (3)
  - DRUG ADMINISTRATION ERROR [None]
  - VAGINAL HAEMORRHAGE [None]
  - WITHDRAWAL BLEEDING IRREGULAR [None]
